FAERS Safety Report 17956770 (Version 1)
Quarter: 2020Q2

REPORT INFORMATION
  Report Type: Spontaneous
  Country: US (occurrence: US)
  Receive Date: 20200629
  Receipt Date: 20200629
  Transmission Date: 20200714
  Serious: No
  Sender: FDA-Public Use
  Company Number: US-ASTRAZENECA-2020SE63666

PATIENT
  Age: 17273 Day
  Sex: Female
  Weight: 54.4 kg

DRUGS (2)
  1. BYDUREON BCISE [Suspect]
     Active Substance: EXENATIDE
     Indication: HYPOGLYCAEMIA
     Dosage: UNKNOWN DOSE AND UNIT ONCE A WEEK
     Route: 058
     Dates: start: 2018
  2. BYDUREON BCISE [Suspect]
     Active Substance: EXENATIDE
     Indication: HYPOGLYCAEMIA
     Route: 058
     Dates: start: 20190111

REACTIONS (4)
  - Injection site erythema [Unknown]
  - Drug dose omission by device [Unknown]
  - Device malfunction [Unknown]
  - Product use issue [Unknown]

NARRATIVE: CASE EVENT DATE: 20200426
